FAERS Safety Report 22258114 (Version 1)
Quarter: 2023Q2

REPORT INFORMATION
  Report Type: Report from Study
  Country: CO (occurrence: CO)
  Receive Date: 20230427
  Receipt Date: 20230427
  Transmission Date: 20230722
  Serious: Yes (Other)
  Sender: FDA-Public Use
  Company Number: CO-ABBVIE-4742592

PATIENT
  Age: 67 Year
  Sex: Female
  Weight: 61 kg

DRUGS (2)
  1. HUMIRA [Suspect]
     Active Substance: ADALIMUMAB
     Indication: Rheumatoid arthritis
     Route: 058
     Dates: end: 20230321
  2. HUMIRA [Suspect]
     Active Substance: ADALIMUMAB

REACTIONS (11)
  - Uterine polyp [Recovering/Resolving]
  - Chest pain [Recovered/Resolved]
  - Vulvovaginal inflammation [Recovering/Resolving]
  - Muscle spasms [Unknown]
  - Dysuria [Recovered/Resolved]
  - Vertigo [Recovering/Resolving]
  - Burning sensation [Recovering/Resolving]
  - Vulvovaginal discomfort [Recovering/Resolving]
  - Stress [Recovered/Resolved]
  - Vulvovaginal erythema [Recovering/Resolving]
  - Muscle spasms [Recovered/Resolved]

NARRATIVE: CASE EVENT DATE: 20230421
